FAERS Safety Report 16127000 (Version 1)
Quarter: 2019Q1

REPORT INFORMATION
  Report Type: Spontaneous
  Country: US (occurrence: US)
  Receive Date: 20190328
  Receipt Date: 20190328
  Transmission Date: 20190418
  Serious: No
  Sender: FDA-Public Use
  Company Number: US-GLAXOSMITHKLINE-US2019052521

PATIENT
  Age: 70 Year
  Sex: Female

DRUGS (2)
  1. FLONASE SENSIMIST ALLERGY RELIEF [Suspect]
     Active Substance: FLUTICASONE FUROATE
     Indication: HYPERSENSITIVITY
     Dosage: UNK (8 MONTHS)
     Dates: start: 2018, end: 20190321
  2. FLONASE SENSIMIST ALLERGY RELIEF [Suspect]
     Active Substance: FLUTICASONE FUROATE
     Indication: SINUS DISORDER

REACTIONS (14)
  - Dysstasia [Unknown]
  - Eyelid disorder [Unknown]
  - Head discomfort [Unknown]
  - Balance disorder [Unknown]
  - Eye swelling [Unknown]
  - Lip swelling [Unknown]
  - Product use in unapproved indication [Unknown]
  - Swelling of eyelid [Unknown]
  - Sneezing [Unknown]
  - Product use issue [Unknown]
  - Ear pain [Unknown]
  - Headache [Unknown]
  - Oral discomfort [Unknown]
  - Asthenia [Unknown]

NARRATIVE: CASE EVENT DATE: 20190320
